FAERS Safety Report 7914726-6 (Version None)
Quarter: 2011Q4

REPORT INFORMATION
  Report Type: 
  Country: None (occurrence: None)
  Receive Date: 20111115
  Receipt Date: 20111109
  Transmission Date: 20120403
  Serious: Yes (Hospitalization, Other)
  Sender: FDA-Public Use
  Company Number: PHHY2011FR30802

PATIENT
  Sex: Female
  Weight: 60 kg

DRUGS (151)
  1. COMTAN [Suspect]
     Indication: PARKINSON'S DISEASE
     Dosage: 1 DF, (1 TAB IN MORNING)
     Route: 048
     Dates: start: 20050123, end: 20050301
  2. STALEVO 100 [Suspect]
     Indication: PARKINSON'S DISEASE
     Dosage: 1 DF, 1 TABLET 5 TIMES PER DAY
     Route: 048
  3. MODOPAR [Suspect]
     Indication: PARKINSON'S DISEASE
     Dosage: 125 MG, QD
  4. MODOPAR [Suspect]
     Dosage: 250 MG AT 1 CAPSULE 5 TIMES PER DAY
     Dates: start: 20070109
  5. MODOPAR [Suspect]
     Dosage: 62.5 MG 5 TIMES PER DAY
     Dates: start: 20090505
  6. MODOPAR [Suspect]
     Dosage: 250 MG, TID
     Dates: start: 20020219
  7. MODOPAR [Suspect]
     Dosage: 125 MG AT 1 TABLET 2 TO 3 TIMES PER DAY, MODOPAR 62.5 MG AT 1 TABLET 4 TIMES PER
     Route: 048
  8. MODOPAR [Suspect]
     Dosage: 125 MG, 1 TO 3 TIMES PER DAY
     Route: 048
     Dates: start: 20080304
  9. MODOPAR [Suspect]
     Dosage: 250 MG, BID, 62.5 MG BID
     Dates: start: 20020322
  10. MODOPAR [Suspect]
     Dosage: 250 MG, TID
     Dates: start: 20041104
  11. PERGOLIDE MESYLATE [Suspect]
     Dosage: 0.5 MG, TID
     Dates: start: 20030905
  12. PRAMIPEXOLE DIHYDROCHLORIDE [Suspect]
     Dosage: UNK
     Dates: start: 20060321
  13. XANAX [Concomitant]
     Dosage: 0.5 MG, UNK
     Dates: start: 20080530
  14. XANAX [Concomitant]
     Dosage: 0.25 MG,4 T/DAY
     Dates: start: 20040728
  15. XANAX [Concomitant]
     Dosage: 0.5 MG, TID
     Dates: start: 20041104
  16. CEFUROXIME [Concomitant]
     Dosage: 250 MG, BID
  17. ECONAZOLE NITRATE [Concomitant]
     Dosage: UNK UKN, UNK
     Dates: start: 20060918
  18. DEPAKOTE [Concomitant]
     Dosage: 500 MG, BID
     Dates: start: 20091019
  19. AMOXICILLIN TRIHYDRATE [Concomitant]
     Dosage: 1 G, BID
     Dates: start: 20041117
  20. STALEVO 100 [Suspect]
     Dosage: 5 DF, 5 TABLETS PER DAY
     Dates: start: 20090415
  21. MODOPAR [Suspect]
     Dosage: UNK UKN, UNK
     Dates: start: 19950101
  22. MODOPAR [Suspect]
     Dosage: 62.5 MG, QID
     Dates: start: 20080304
  23. MODOPAR [Suspect]
     Dosage: 62.5 MG, QID
     Dates: start: 20080530
  24. MODOPAR [Suspect]
     Dosage: 125 MG, SCATTERED TAB IF NEEDED, 62.5 MG 5 TABS/D
     Dates: start: 20090818
  25. MODOPAR [Suspect]
     Dosage: 125 MG,ONE SCATTERED TAB PER DAY, 62.5 MG 3 TAB/DAY
     Dates: start: 20100302
  26. MODOPAR [Suspect]
     Dosage: 250 MG, TID, 62.5 MG 1 TABLET MID DAY
     Dates: start: 20020219
  27. MODOPAR [Suspect]
     Dosage: 250 MG, TID 62.5 MG 1 TAB/DAY
     Dates: start: 20040901
  28. MODOPAR [Suspect]
     Dosage: 62.5 MG, 5 TABS/DAY
     Dates: start: 20090216
  29. PERGOLIDE MESYLATE [Suspect]
     Dosage: UNK UKN, UNK
     Dates: start: 20030201
  30. EFFEXOR [Concomitant]
     Dosage: 75 MG, BID
     Dates: start: 20081125
  31. XANAX [Concomitant]
     Dosage: 0.5 MG, TID
     Dates: start: 20080625
  32. XANAX [Concomitant]
     Dosage: 0.5 MG, 5/ DAY
     Dates: start: 20090205
  33. XANAX [Concomitant]
     Dosage: 0.5 MG, 5 TAB/DAY
     Dates: start: 20090406
  34. XANAX [Concomitant]
     Dosage: 0.25 MG, HALF TABLET 5 TIMES A DAY
     Dates: start: 20080715
  35. IMOVANE [Concomitant]
     Dosage: 7.5 MG, QHS
  36. IMOVANE [Concomitant]
     Dosage: 1 DF, UNK
     Dates: start: 20080715
  37. ATHYMIL [Concomitant]
     Dosage: 50 MG, UNK
     Dates: start: 20090725
  38. LORAZEPAM [Concomitant]
     Dosage: 2.5 MG, UNK
     Dates: start: 20090209
  39. ATARAX [Concomitant]
     Dosage: 4 DF, UNK
     Dates: start: 20090602
  40. ELUDRIL [Concomitant]
     Dosage: UNK UKN, UNK
  41. STALEVO 100 [Suspect]
     Dosage: 1 DF, 1 TABLET 5 TIMES PER DAY
     Route: 048
     Dates: start: 20080530
  42. MODOPAR [Suspect]
     Dosage: 125 MG, 1 TAB IN EVENING
     Dates: start: 20091102
  43. MODOPAR [Suspect]
     Dosage: 250 MG  AT 1 CAPSULE 3 TIMES PER DAY
     Dates: start: 20071205
  44. MODOPAR [Suspect]
     Dosage: UNK DF, BIDSCATTERED TAB BID, MODOPAR 62.5, 5 TABS/DAY
     Dates: start: 20090725
  45. EFFEXOR [Concomitant]
     Dosage: 75 MG, BID
     Dates: start: 20090917
  46. XANAX [Concomitant]
     Dosage: 0.5 MG, TID
     Dates: start: 20040925
  47. ACETAMINOPHEN AND TRAMADOL HCL [Concomitant]
     Dosage: 1 DF, QD
     Dates: start: 20080105
  48. ATHYMIL [Concomitant]
     Dosage: 30 MG, UNK
     Dates: start: 20090512
  49. LOXAPINE HCL [Concomitant]
     Dosage: 15 DRP, TID
     Dates: start: 20080130
  50. IBUPROFEN [Concomitant]
     Dosage: 400 MG, UNK
  51. LEVONORGESTREL AND ETHINYL ESTRADIOL [Concomitant]
     Dosage: UNK UKN, UNK
  52. STILNOX                                 /FRA/ [Concomitant]
     Dosage: 1 DF, UNK
     Dates: start: 20040915
  53. STALEVO 100 [Suspect]
     Dosage: 6 DF, PER DAY
     Dates: start: 20100302
  54. MODOPAR [Suspect]
     Dosage: 0.5 DF, FIVE TIME DAILY
     Dates: start: 20070830
  55. MODOPAR [Suspect]
     Dosage: 125 MG, QD  MODOPAR 62.5 MG AT 5 TIMES PER DAY
     Dates: start: 20080915
  56. PERGOLIDE MESYLATE [Suspect]
     Dosage: 1 MG, UNK
     Dates: start: 20050123, end: 20060321
  57. EFFEXOR [Concomitant]
     Dosage: 50 MG, TID
     Dates: start: 20050331
  58. EFFEXOR [Concomitant]
     Dosage: 75 MG, BID
     Dates: start: 20110406
  59. EFFEXOR [Concomitant]
     Dosage: 75 MG, BID
     Dates: start: 20090818
  60. EFFEXOR [Concomitant]
     Dosage: 50 MG, BID
     Dates: start: 20020219
  61. XANAX [Concomitant]
     Dosage: 0.5 MG, QID
  62. DEPAKOTE [Concomitant]
     Dosage: 250 MG, (2 IN MORNING, 2 IN EVENING)
     Dates: start: 20090519
  63. PRAZEPAM [Concomitant]
     Dosage: 10 MG, UNK
     Dates: start: 20090803
  64. ZOLOFT [Concomitant]
     Dosage: 50 MG, BID
     Dates: start: 20040915
  65. COMTAN [Suspect]
     Dosage: 0.5 TABLET 3 TIMES PER DAY
     Route: 048
     Dates: start: 20071205
  66. STALEVO 100 [Suspect]
     Dosage: UNK UKN, UNK
     Dates: end: 20101101
  67. STALEVO 100 [Suspect]
     Dosage: 5 DF, (5 TABS PER DAY0
     Dates: start: 20090105
  68. MODOPAR [Suspect]
     Dosage: 125 MG, UNK
     Dates: start: 20100727
  69. MODOPAR [Suspect]
     Dosage: 125 MG, MODOPAR 62.5 MG
     Dates: start: 20081029
  70. MODOPAR [Suspect]
     Dosage: 250 MG, BID 62.5 MGG 1TAB/DAY
     Dates: start: 20020813
  71. MODOPAR [Suspect]
     Dosage: 250 MG, UNK
     Dates: start: 20030905
  72. MODOPAR [Suspect]
     Dosage: 250 MG, TID 62.5 MG 1 TAB/DAY
     Dates: start: 20041214
  73. MODOPAR [Suspect]
     Dosage: 62.5 MG, 5 TABS/DAY
     Dates: start: 20081115
  74. EFFEXOR [Concomitant]
     Dosage: 50 MG, QD
     Dates: start: 20080105
  75. EFFEXOR [Concomitant]
     Dosage: 75 MG, BID
     Dates: start: 20080625
  76. XANAX [Concomitant]
     Dosage: 0.5 MG, TID
     Dates: start: 20050331
  77. XANAX [Concomitant]
     Dosage: 0.25 MG, TID
     Dates: start: 20080130
  78. XANAX [Concomitant]
     Dosage: 0.25 MG, TID
     Dates: start: 20020322
  79. ACETAMINOPHEN AND TRAMADOL HCL [Concomitant]
     Dosage: 1 DF, TID
     Dates: start: 20060622
  80. IMOVANE [Concomitant]
     Dosage: 2 DF, QHS
     Dates: start: 20020219
  81. IMOVANE [Concomitant]
     Dosage: 1 DF, BID
     Dates: start: 20020322
  82. ATHYMIL [Concomitant]
     Dosage: 10 MG, 5 TAB PER DAY
     Dates: start: 20090205
  83. ATHYMIL [Concomitant]
     Dosage: 30 MG, UNK
     Dates: start: 20090602
  84. ATARAX [Concomitant]
     Dosage: 25 MG, TID
     Dates: start: 20080125
  85. NECYRANE [Concomitant]
     Dosage: UNK UKN, UNK
     Dates: start: 20060313
  86. CARBOCISTEINE [Concomitant]
     Dosage: UNK UKN, UNK
  87. ACETAMINOPHEN [Concomitant]
     Dosage: 1000 MG, TID
     Dates: start: 20041214
  88. ATARAX [Concomitant]
     Dosage: 25 MG, UNK
     Dates: start: 20090209
  89. INTETRIX [Concomitant]
     Dosage: 4 DF, UNK
  90. GAVISCON                                /GFR/ [Concomitant]
     Dosage: UNK UKN, UNK
     Dates: start: 20040915
  91. COMTAN [Suspect]
     Dosage: 0.5 TABLET 5 TIMES PER DAY
     Route: 048
     Dates: start: 20060629
  92. COMTAN [Suspect]
     Dosage: 0.5 TABLET FIVE TIMES PER DAY
     Route: 048
     Dates: start: 20080105
  93. STALEVO 100 [Suspect]
     Dosage: 5 DF, 5 TAB/DAY
     Dates: start: 20091102
  94. STALEVO 100 [Suspect]
     Dosage: 5 DF,PER DAY
     Dates: start: 20091219
  95. STALEVO 100 [Suspect]
     Dosage: 5 DF, (5 TABS PER DAY0
     Dates: start: 20090216
  96. MODOPAR [Suspect]
     Dosage: 125 MG, 1 TAB PER DAY
     Dates: start: 20090725
  97. MODOPAR [Suspect]
     Dosage: 125 MG, 1 TAB PER DAY
     Dates: start: 20090818
  98. MODOPAR [Suspect]
     Dosage: 125 MG, QID
     Route: 048
     Dates: start: 20080625
  99. MODOPAR [Suspect]
     Dosage: 62.5 MG, 5 TABS/DAY
     Dates: start: 20090101
  100. PRAMIPEXOLE DIHYDROCHLORIDE [Suspect]
     Dosage: 0.7 MG, TID
     Dates: start: 20060622
  101. EFFEXOR [Concomitant]
     Dosage: 50 MG, UNK
     Dates: start: 20081029
  102. EFFEXOR [Concomitant]
     Dosage: 50 MG, BID
     Dates: start: 20020813
  103. EFFEXOR [Concomitant]
     Dosage: UNK UKN, UNK
     Dates: start: 20030905
  104. EFFEXOR [Concomitant]
     Dosage: 50 MG, BID
     Dates: start: 20040915
  105. ATHYMIL [Concomitant]
     Dosage: 30 MG, QD
     Dates: start: 20080130
  106. ATHYMIL [Concomitant]
     Dosage: 30 MG, UNK
     Dates: start: 20091112
  107. ATHYMIL [Concomitant]
     Dosage: 30 MG, UNK
     Dates: start: 20091219
  108. LYSOPAINE [Concomitant]
     Dosage: UNK UKN, UNK
  109. ATARAX [Concomitant]
     Dosage: 5 DF, UNK
     Dates: start: 20090415
  110. STALEVO 100 [Suspect]
     Dosage: 1 DF, QID
     Route: 048
     Dates: start: 20080304
  111. STALEVO 100 [Suspect]
     Dosage: 5 DF, 5 TAB/DAY
     Dates: start: 20090818
  112. MODOPAR [Suspect]
     Dosage: 125 MG, BID (1 IN THE MORNING, 1 IN THE EVENING)
     Dates: start: 20090302
  113. MODOPAR [Suspect]
     Dosage: 125 MG,1/DAY PLUS 1 IF NEEDED, 62.5 MG, 5 TABS/DAY
     Dates: start: 20090406
  114. MODOPAR [Suspect]
     Dosage: 125 MG, UNK
     Dates: start: 20090430
  115. MODOPAR [Suspect]
     Dosage: 125 MG, 1 TAB IN EVENING
     Dates: start: 20090602
  116. MODOPAR [Suspect]
     Dosage: 250 MG  AT 1 CAPSULE 3 TIMES PER DAY, MODOPAR 125 MG AT 1 TABLET IN THE MORNING, MODOPAR 62.5
     Dates: start: 20070510
  117. MODOPAR [Suspect]
     Dosage: 125 MG  TWICE PER DAY, MODOPAR 62.5 MG AT 1 CAPSULE 4 TIMES PER DAY DAILY
     Dates: start: 20080206
  118. MODOPAR [Suspect]
     Dosage: UNK UKN, QID
     Route: 048
     Dates: start: 20080530
  119. MODOPAR [Suspect]
     Dosage: 125 MG,  IN EVENING, 62.5 MG 5 TABS PER DAY
     Dates: start: 20091102
  120. PERGOLIDE MESYLATE [Suspect]
     Dosage: 1 MG, TID
     Dates: start: 20041021
  121. EFFEXOR [Concomitant]
     Dosage: 37.5 MG, TID
     Dates: start: 20070109
  122. EFFEXOR [Concomitant]
     Dosage: 50 MG, BID
     Dates: start: 20080130
  123. EFFEXOR [Concomitant]
     Dosage: 75 MG, TID
     Dates: start: 20090209
  124. XANAX [Concomitant]
     Dosage: 0.5 MG, 5 TAB/DAY
     Dates: start: 20090602
  125. XANAX [Concomitant]
     Dosage: 0.25 MG, TID
     Dates: start: 20020813
  126. IMOVANE [Concomitant]
     Dosage: 1 DF, BID
     Dates: start: 20020813
  127. ATHYMIL [Concomitant]
     Dosage: 30 MG, UNK
     Dates: start: 20090917
  128. ACETAMINOPHEN [Concomitant]
     Dosage: 500 MG, UNK
     Dates: start: 20090602
  129. STALEVO 100 [Suspect]
     Dosage: 5 DF, 5 TAB/DAY
     Dates: start: 20090725
  130. STALEVO 100 [Suspect]
     Dosage: 5 DF, 5 TAB/DAY
     Dates: start: 20091019
  131. STALEVO 100 [Suspect]
     Dosage: 5 DF, (5 TABS PER DAY0
     Dates: start: 20080827
  132. STALEVO 100 [Suspect]
     Dosage: 5 DF, (5 TABS PER DAY0
     Dates: start: 20081212
  133. MODOPAR [Suspect]
     Dosage: 125 MG, 1 TAB IN EVENING
     Dates: start: 20090927
  134. MODOPAR [Suspect]
     Dosage: 250 MG AT 1 CAPSULE 3 TIMES PER DAY, MODOPAR 125 MG AT 1 TABLET IN THE MORNING, MODOPAR 62.5
     Dates: start: 20060622
  135. MODOPAR [Suspect]
     Dosage: 125 MG  IN EVENING, 62.5 MG 5 TAB/DAY
     Dates: start: 20090917
  136. MODOPAR [Suspect]
     Dosage: 62.5 MG, 4 TABS/DAY
     Dates: start: 20080715
  137. EFFEXOR [Concomitant]
     Dosage: 50 MG, QD
     Dates: start: 20060622
  138. EFFEXOR [Concomitant]
     Dosage: 75 MG, UNK
     Dates: start: 20090602
  139. EFFEXOR [Concomitant]
     Dosage: 75 MG, BID
     Dates: start: 20091019
  140. EFFEXOR [Concomitant]
     Dosage: 50 MG, BID
     Dates: start: 20020222
  141. EFFEXOR [Concomitant]
     Dosage: 50 MG, 5 TABS/ DAY
     Dates: start: 20080715
  142. XANAX [Concomitant]
     Dosage: 0.5 MG, 5 TABS/DAY
     Dates: start: 20090512
  143. XANAX [Concomitant]
     Dosage: 0.5 MG, 5 TAB/DAY
     Dates: start: 20090725
  144. XANAX [Concomitant]
     Dosage: 0.5 MG, 5 TAB/DAY
     Dates: start: 20091019
  145. XANAX [Concomitant]
     Dosage: 0.25 MG, TID
     Dates: start: 20030905
  146. XANAX [Concomitant]
     Dosage: 0.5 MG, TID
     Dates: start: 20041214
  147. XANAX [Concomitant]
     Dosage: 0.5 MG, TID
     Dates: start: 20050123
  148. KETOCONAZOLE [Concomitant]
     Dosage: UNK UKN, UNK
     Dates: start: 20060918
  149. ATARAX [Concomitant]
     Dosage: 5 DF, UNK
     Dates: start: 20090406
  150. DEPAKOTE [Concomitant]
     Dosage: 250 MG, BID
     Dates: start: 20090512
  151. HEPTAMINOL [Concomitant]
     Dosage: 30 DRP, TID
     Dates: start: 20030408

REACTIONS (30)
  - CORNEAL REFLEX DECREASED [None]
  - AGITATION [None]
  - FALL [None]
  - TREMOR [None]
  - NECK PAIN [None]
  - C-REACTIVE PROTEIN INCREASED [None]
  - NEUROSIS [None]
  - MUSCULOSKELETAL PAIN [None]
  - RED BLOOD CELL SEDIMENTATION RATE INCREASED [None]
  - IRRITABILITY [None]
  - SUICIDAL IDEATION [None]
  - MUSCLE RIGIDITY [None]
  - ABNORMAL BEHAVIOUR [None]
  - PSYCHOMOTOR HYPERACTIVITY [None]
  - SUICIDE ATTEMPT [None]
  - DEPRESSED MOOD [None]
  - DYSTHYMIC DISORDER [None]
  - DYSPNOEA [None]
  - AKINESIA [None]
  - BACK PAIN [None]
  - BALANCE DISORDER [None]
  - AMIMIA [None]
  - PSYCHOTIC BEHAVIOUR [None]
  - DEPRESSION [None]
  - THYMUS DISORDER [None]
  - MUSCLE SPASMS [None]
  - COMPULSIVE SHOPPING [None]
  - HYPOMANIA [None]
  - WEIGHT INCREASED [None]
  - CHROMATURIA [None]
